FAERS Safety Report 6429720-4 (Version None)
Quarter: 2009Q4

REPORT INFORMATION
  Report Type: 
  Country: None (occurrence: None)
  Receive Date: 20091106
  Receipt Date: 20091029
  Transmission Date: 20100525
  Serious: Yes (Death, Congenital Anomaly)
  Sender: FDA-Public Use
  Company Number: US-BIOGENIDEC-2009BI035482

PATIENT
  Sex: Female

DRUGS (2)
  1. AVONEX [Suspect]
     Indication: DRUG EXPOSURE DURING PREGNANCY
     Route: 064
     Dates: start: 20040820, end: 20070601
  2. AVONEX [Suspect]
     Route: 030
     Dates: start: 20080601, end: 20081201

REACTIONS (5)
  - CYTOGENETIC ABNORMALITY [None]
  - HEART DISEASE CONGENITAL [None]
  - RIB HYPOPLASIA [None]
  - SCOLIOSIS [None]
  - SICKLE CELL ANAEMIA [None]
